FAERS Safety Report 13165712 (Version 1)
Quarter: 2017Q1

REPORT INFORMATION
  Report Type: Spontaneous
  Country: US (occurrence: US)
  Receive Date: 20170127
  Receipt Date: 20170127
  Transmission Date: 20170428
  Serious: Yes (Hospitalization)
  Sender: FDA-Public Use
  Company Number: None

PATIENT
  Age: 29 Year
  Sex: Female
  Weight: 92.8 kg

DRUGS (1)
  1. TRAMADOL. [Suspect]
     Active Substance: TRAMADOL
     Indication: PAIN
     Route: 048
     Dates: start: 20170107, end: 20170116

REACTIONS (5)
  - Confusional state [None]
  - Headache [None]
  - Musculoskeletal stiffness [None]
  - Somnolence [None]
  - Seizure [None]

NARRATIVE: CASE EVENT DATE: 20161216
